FAERS Safety Report 17591804 (Version 1)
Quarter: 2020Q1

REPORT INFORMATION
  Report Type: Spontaneous
  Country: US (occurrence: US)
  Receive Date: 20200327
  Receipt Date: 20200327
  Transmission Date: 20200409
  Serious: No
  Sender: FDA-Public Use
  Company Number: US-TOPROL ACQUISITION LLC-2019-TOP-000455

PATIENT
  Sex: Female
  Weight: 86.4 kg

DRUGS (9)
  1. METFORMIN [Concomitant]
     Active Substance: METFORMIN HYDROCHLORIDE
     Indication: TYPE 2 DIABETES MELLITUS
     Dosage: 500 MG, BID
     Route: 048
  2. REPATHA [Concomitant]
     Active Substance: EVOLOCUMAB
     Indication: CORONARY ARTERY DISEASE
     Dosage: 140 MG/ML, EVERY 2 WEEKS
  3. GLIPIZIDE. [Concomitant]
     Active Substance: GLIPIZIDE
     Indication: TYPE 2 DIABETES MELLITUS
     Dosage: 10 MG, BID
     Route: 048
  4. WELLBUTRIN [Concomitant]
     Active Substance: BUPROPION HYDROCHLORIDE
     Indication: ANXIETY DISORDER
     Dosage: 150 MG, BID
     Route: 048
  5. METOPROLOL SUCCINATE. [Suspect]
     Active Substance: METOPROLOL SUCCINATE
     Indication: HYPERTENSION
     Dosage: 50 MG, BID
     Route: 048
  6. BRILINTA [Concomitant]
     Active Substance: TICAGRELOR
     Indication: CORONARY ARTERY DISEASE
     Dosage: 90 MG, BID
     Route: 048
  7. LIPITOR [Concomitant]
     Active Substance: ATORVASTATIN CALCIUM
     Indication: HYPERLIPIDAEMIA
     Dosage: 80 MG, QD
     Route: 048
  8. FISH OIL [Concomitant]
     Active Substance: FISH OIL
     Indication: HYPERLIPIDAEMIA
     Dosage: 1000 MG, QD
     Route: 048
  9. ASPIRIN                            /00002701/ [Concomitant]
     Active Substance: ASPIRIN
     Indication: HYPERTENSION
     Dosage: 81 MG, QD
     Route: 048

REACTIONS (1)
  - Inappropriate schedule of product administration [Unknown]
